FAERS Safety Report 10188990 (Version 1)
Quarter: 2014Q2

REPORT INFORMATION
  Report Type: Spontaneous
  Country: GB (occurrence: None)
  Receive Date: 20140520
  Receipt Date: 20140520
  Transmission Date: 20141212
  Serious: Yes (Hospitalization)
  Sender: FDA-Public Use
  Company Number: AUR-APL-2014-05631

PATIENT
  Age: 64 Year
  Sex: Male

DRUGS (1)
  1. NAPROXEN (NAPROXEN) [Suspect]
     Indication: OSTEOARTHRITIS
     Route: 048
     Dates: start: 20050712, end: 20110912

REACTIONS (6)
  - Cerebrovascular accident [None]
  - Chest pain [None]
  - Dyspnoea [None]
  - Dysarthria [None]
  - Atrial fibrillation [None]
  - Lacunar infarction [None]
